FAERS Safety Report 6851589-4 (Version None)
Quarter: 2010Q3

REPORT INFORMATION
  Report Type: 
  Country: None (occurrence: None)
  Receive Date: 20100717
  Receipt Date: 20080119
  Transmission Date: 20110219
  Serious: Yes (Other)
  Sender: FDA-Public Use
  Company Number: US-PFIZER INC-2008007792

PATIENT
  Sex: Female
  Weight: 53.5 kg

DRUGS (8)
  1. CHANTIX [Suspect]
     Indication: SMOKING CESSATION THERAPY
     Route: 048
     Dates: start: 20080101
  2. AGGRENOX [Concomitant]
  3. ANTITHROMBOTIC AGENTS [Concomitant]
  4. KEPPRA [Concomitant]
  5. TIMOLOL MALEATE [Concomitant]
  6. AMITIZA [Concomitant]
  7. ACETYLSALICYLIC ACID [Concomitant]
  8. ZYRTEC [Concomitant]

REACTIONS (8)
  - ABDOMINAL DISCOMFORT [None]
  - CONVULSION [None]
  - DISORIENTATION [None]
  - FEELING ABNORMAL [None]
  - INSOMNIA [None]
  - MENTAL IMPAIRMENT [None]
  - PARAESTHESIA [None]
  - SOMNOLENCE [None]
